FAERS Safety Report 23877810 (Version 1)
Quarter: 2024Q2

REPORT INFORMATION
  Report Type: Spontaneous
  Country: SG (occurrence: SG)
  Receive Date: 20240521
  Receipt Date: 20240521
  Transmission Date: 20240716
  Serious: Yes (Hospitalization, Other)
  Sender: FDA-Public Use
  Company Number: SG-BAYER-2024A048366

PATIENT
  Age: 80 Year
  Sex: Male

DRUGS (3)
  1. EYLEA [Suspect]
     Active Substance: AFLIBERCEPT
     Indication: Macular degeneration
     Dosage: UNK, 40 MG/ML, SOLUTION FOR INJECTION
     Dates: start: 2022, end: 2022
  2. EYLEA [Suspect]
     Active Substance: AFLIBERCEPT
     Dosage: UNK, 40 MG/ML, SOLUTION FOR INJECTION
     Dates: start: 20230824
  3. BRILINTA [Concomitant]
     Active Substance: TICAGRELOR
     Indication: Transient ischaemic attack
     Dosage: UNK

REACTIONS (6)
  - Cerebrovascular accident [Unknown]
  - Dysarthria [Recovering/Resolving]
  - Confusional state [Recovered/Resolved]
  - Asthenia [Recovered/Resolved]
  - Confusional state [Recovered/Resolved]
  - Asthenia [Recovered/Resolved]

NARRATIVE: CASE EVENT DATE: 20230601
